FAERS Safety Report 12133401 (Version 2)
Quarter: 2016Q2

REPORT INFORMATION
  Report Type: Spontaneous
  Country: NL (occurrence: NL)
  Receive Date: 20160301
  Receipt Date: 20160513
  Transmission Date: 20160815
  Serious: Yes (Death, Hospitalization)
  Sender: FDA-Public Use
  Company Number: NL-ACTELION-A-CH2016-131914

PATIENT
  Age: 63 Year
  Sex: Female

DRUGS (7)
  1. TRACLEER [Suspect]
     Active Substance: BOSENTAN
     Indication: SCLERODERMA ASSOCIATED DIGITAL ULCER
     Dosage: 125 MG, BID
     Route: 048
     Dates: start: 20131031, end: 20160211
  2. ZOPICLON [Concomitant]
     Active Substance: ZOPICLONE
     Dosage: 7.5 MG, OD
  3. TIOTROPIUM [Concomitant]
     Active Substance: TIOTROPIUM
     Indication: CHRONIC OBSTRUCTIVE PULMONARY DISEASE
     Dosage: UNK UNK, OD
     Route: 055
  4. PREDNISOLON [Concomitant]
     Active Substance: PREDNISOLONE
     Indication: SYSTEMIC SCLEROSIS
     Dosage: 5 MG, OD
  5. METOPROLOL. [Concomitant]
     Active Substance: METOPROLOL
     Indication: CARDIAC DISORDER
     Dosage: 10 MG, OD
  6. SILDENAFIL. [Concomitant]
     Active Substance: SILDENAFIL
     Indication: SYSTEMIC SCLEROSIS
     Dosage: 20 MG, TID
  7. TRACLEER [Suspect]
     Active Substance: BOSENTAN
     Dosage: 125 MG, BID
     Route: 048
     Dates: start: 20060725

REACTIONS (2)
  - Gastrointestinal disorder [Fatal]
  - Cardiac arrest [Fatal]
